FAERS Safety Report 26081730 (Version 2)
Quarter: 2025Q4

REPORT INFORMATION
  Report Type: Spontaneous
  Country: US (occurrence: None)
  Receive Date: 20251124
  Receipt Date: 20251203
  Transmission Date: 20260117
  Serious: No
  Sender: Alvotech
  Company Number: US-ALVOTECHPMS-2025-ALVOTECHPMS-005584

PATIENT
  Age: 57 Year
  Sex: Female

DRUGS (6)
  1. ADALIMUMAB-RYVK [Suspect]
     Active Substance: ADALIMUMAB-RYVK
     Indication: Rheumatoid arthritis
     Dosage: INJECTION
     Route: 058
     Dates: start: 2024
  2. MELOXICAM [Concomitant]
     Active Substance: MELOXICAM
  3. FOLIC ACID [Concomitant]
     Active Substance: FOLIC ACID
  4. METHOTREXATE [Concomitant]
     Active Substance: METHOTREXATE
  5. IRON [Concomitant]
     Active Substance: IRON
  6. ZINC [Concomitant]
     Active Substance: ZINC

REACTIONS (2)
  - Product substitution issue [Unknown]
  - Injection site pain [Recovered/Resolved]
